FAERS Safety Report 12631727 (Version 2)
Quarter: 2016Q3

REPORT INFORMATION
  Report Type: Spontaneous
  Country: US (occurrence: US)
  Receive Date: 20160808
  Receipt Date: 20160808
  Transmission Date: 20161109
  Serious: No
  Sender: FDA-Public Use
  Company Number: US-BEH-2016060832

PATIENT
  Sex: Female
  Weight: 87 kg

DRUGS (19)
  1. HIZENTRA [Suspect]
     Active Substance: HUMAN IMMUNOGLOBULIN G
     Indication: IMMUNODEFICIENCY COMMON VARIABLE
     Route: 058
  2. SYNTHROID [Concomitant]
     Active Substance: LEVOTHYROXINE SODIUM
  3. HIZENTRA [Suspect]
     Active Substance: HUMAN IMMUNOGLOBULIN G
  4. TAGAMET [Concomitant]
     Active Substance: CIMETIDINE
  5. ALEVE [Concomitant]
     Active Substance: NAPROXEN SODIUM
  6. LIDOCAINE. [Concomitant]
     Active Substance: LIDOCAINE
  7. ZYRTEC [Concomitant]
     Active Substance: CETIRIZINE HYDROCHLORIDE
  8. TUMS ULTRA [Concomitant]
     Active Substance: CALCIUM CARBONATE
  9. L-M-X [Concomitant]
  10. OMEPRAZOLE. [Concomitant]
     Active Substance: OMEPRAZOLE
  11. PHILLIPS^ COLON HEALTH [Concomitant]
     Active Substance: PROBIOTICS NOS
  12. EXCEDRIN MIGRAINE [Concomitant]
     Active Substance: ACETAMINOPHEN\ASPIRIN\CAFFEINE
  13. ACETAMINOPHEN. [Concomitant]
     Active Substance: ACETAMINOPHEN
  14. DIPHENHYDRAMINE. [Concomitant]
     Active Substance: DIPHENHYDRAMINE
  15. LIDOCAINE/PRILOCAINE [Concomitant]
     Active Substance: LIDOCAINE\PRILOCAINE
  16. EPIPEN [Concomitant]
     Active Substance: EPINEPHRINE
  17. HIZENTRA [Suspect]
     Active Substance: HUMAN IMMUNOGLOBULIN G
  18. BIAXIN [Concomitant]
     Active Substance: CLARITHROMYCIN
  19. BUPROPION. [Concomitant]
     Active Substance: BUPROPION

REACTIONS (1)
  - Viral infection [Unknown]
